FAERS Safety Report 5000727-7 (Version None)
Quarter: 2006Q2

REPORT INFORMATION
  Report Type: 
  Country: None (occurrence: None)
  Receive Date: 20060512
  Receipt Date: 20060503
  Transmission Date: 20061013
  Serious: Yes (Death, Other)
  Sender: FDA-Public Use
  Company Number: PHBS2006US06700

PATIENT
  Age: 43 Year
  Sex: Male

DRUGS (4)
  1. CYCLOSPORINE [Suspect]
     Indication: RENAL TRANSPLANT
     Dosage: 120 MG/D
     Route: 065
  2. PREDNISONE TAB [Suspect]
     Indication: RENAL TRANSPLANT
     Dosage: 20 MG/D
     Route: 065
  3. AZATHIOPRINE [Suspect]
     Indication: RENAL TRANSPLANT
     Dosage: 125 MG/D
     Route: 065
  4. CLONIDINE [Concomitant]
     Dosage: 0.3 MG/D

REACTIONS (4)
  - CHORIORETINOPATHY [None]
  - LASER THERAPY [None]
  - MULTI-ORGAN FAILURE [None]
  - PNEUMONIA [None]
